FAERS Safety Report 5265668-9 (Version None)
Quarter: 2007Q1

REPORT INFORMATION
  Report Type: 
  Country: None (occurrence: None)
  Receive Date: 20061213
  Receipt Date: 20020620
  Transmission Date: 20070707
  Serious: Yes (Hospitalization)
  Sender: FDA-Public Use
  Company Number: 2002UW08673

PATIENT
  Age: 51 Year
  Sex: Female
  Weight: 95.709 kg

DRUGS (8)
  1. TAMOXIFEN CITRATE [Suspect]
     Dosage: 20 MG DAILY PO
     Route: 048
     Dates: start: 20010523, end: 20020601
  2. SYNTHROID [Concomitant]
  3. CELEBREX [Concomitant]
  4. PAXIL [Concomitant]
  5. ALDACTONE [Concomitant]
  6. PRILOSEC [Concomitant]
  7. COUMADIN [Concomitant]
  8. PREDNISONE [Concomitant]

REACTIONS (2)
  - DEEP VEIN THROMBOSIS [None]
  - PYODERMA [None]
